FAERS Safety Report 16337178 (Version 2)
Quarter: 2019Q2

REPORT INFORMATION
  Report Type: Spontaneous
  Country: GB (occurrence: GB)
  Receive Date: 20190521
  Receipt Date: 20190626
  Transmission Date: 20190711
  Serious: Yes (Disabling, Other)
  Sender: FDA-Public Use
  Company Number: GB-MYLANLABS-2019M1014691

PATIENT
  Age: 80 Year
  Sex: Male

DRUGS (8)
  1. PRAMIPEXOLE. [Suspect]
     Active Substance: PRAMIPEXOLE
     Dosage: 3 DOSAGE FORM, QD (EITHER 0.125 OR 0.25MG)
     Route: 048
  2. RASAGILINE. [Concomitant]
     Active Substance: RASAGILINE
     Indication: PARKINSON^S DISEASE
     Dosage: UNK
     Dates: start: 201309
  3. MADOPAR [Concomitant]
     Active Substance: BENSERAZIDE HYDROCHLORIDE\LEVODOPA
     Dosage: SLOWLY INCREASING DOSE AS BECOMES LESS EFFECTIVE
     Dates: start: 2014
  4. PRAMIPEXOLE. [Suspect]
     Active Substance: PRAMIPEXOLE
     Indication: PARKINSON^S DISEASE
     Dosage: 0.26 MILLIGRAM, QW
     Dates: start: 201804, end: 201804
  5. PRAMIPEXOLE. [Suspect]
     Active Substance: PRAMIPEXOLE
     Dosage: 1.05 MILLIGRAM, QD
     Dates: end: 20180724
  6. FELODIPINE. [Concomitant]
     Active Substance: FELODIPINE
     Indication: HYPERTENSION
     Dosage: 2.5 MILLIGRAM, QD
  7. LEVOTHYROXINE. [Concomitant]
     Active Substance: LEVOTHYROXINE
     Dosage: 100 MICROGRAM, QD
     Dates: start: 1987
  8. PRAMIPEXOLE. [Suspect]
     Active Substance: PRAMIPEXOLE
     Dosage: 0.54 MILLIGRAM, QD
     Dates: end: 20180725

REACTIONS (14)
  - Drug withdrawal syndrome [Recovering/Resolving]
  - Fall [Recovered/Resolved]
  - Agitation [Not Recovered/Not Resolved]
  - Restlessness [Not Recovered/Not Resolved]
  - Vision blurred [Recovered/Resolved]
  - Impulsive behaviour [Recovered/Resolved]
  - Hyperhidrosis [Not Recovered/Not Resolved]
  - Dry mouth [Recovered/Resolved]
  - Sticky skin [Not Recovered/Not Resolved]
  - Feeling hot [Not Recovered/Not Resolved]
  - Tremor [Unknown]
  - Dry eye [Recovered/Resolved]
  - Psychomotor hyperactivity [Recovering/Resolving]
  - Libido increased [Recovered/Resolved]

NARRATIVE: CASE EVENT DATE: 201806
